FAERS Safety Report 11755826 (Version 1)
Quarter: 2015Q4

REPORT INFORMATION
  Report Type: Spontaneous
  Country: CA (occurrence: CA)
  Receive Date: 20151119
  Receipt Date: 20151119
  Transmission Date: 20160304
  Serious: Yes (Other)
  Sender: FDA-Public Use
  Company Number: CA-ELI_LILLY_AND_COMPANY-CA201511002540

PATIENT
  Age: 32 Year
  Sex: Male
  Weight: 53 kg

DRUGS (24)
  1. DETROL LA [Suspect]
     Active Substance: TOLTERODINE TARTRATE
     Indication: PROSTATITIS
     Dosage: 4 MG, QD
     Route: 048
  2. PENTOSAN POLYSULFATE SODIUM [Suspect]
     Active Substance: PENTOSAN POLYSULFATE SODIUM
     Indication: CYSTITIS
     Dosage: 200 MG, QD
     Route: 048
  3. EMTRICITABINE W/TENOFOVIR DISOPROXIL FUMARATE [Suspect]
     Active Substance: EMTRICITABINE\TENOFOVIR DISOPROXIL
     Indication: HIV INFECTION
     Dosage: 1 DF, QD
     Route: 048
  4. PENTOSAN POLYSULFATE SODIUM [Suspect]
     Active Substance: PENTOSAN POLYSULFATE SODIUM
     Indication: NIGHT SWEATS
     Dosage: 200 MG, QD
     Route: 048
  5. TRUVADA [Suspect]
     Active Substance: EMTRICITABINE\TENOFOVIR DISOPROXIL FUMARATE
     Indication: HIV INFECTION
     Dosage: 1 DF, UNKNOWN
     Route: 048
  6. CELSENTRI [Suspect]
     Active Substance: MARAVIROC
     Indication: HIV INFECTION
     Dosage: 2 DF, QD
     Route: 048
  7. DARIFENACIN HYDROBROMIDE [Suspect]
     Active Substance: DARIFENACIN HYDROBROMIDE
     Indication: PROSTATITIS
     Dosage: 7.5 MG, UNK
     Route: 048
  8. DETROL LA [Suspect]
     Active Substance: TOLTERODINE TARTRATE
     Dosage: 4 MG, QD
     Route: 048
  9. ATIVAN [Concomitant]
     Active Substance: LORAZEPAM
     Dosage: UNK, UNKNOWN
     Route: 065
  10. FLUCLOXACILLIN [Concomitant]
     Active Substance: FLUCLOXACILLIN
     Dosage: UNK, UNKNOWN
     Route: 065
  11. GABAPENTIN. [Concomitant]
     Active Substance: GABAPENTIN
     Dosage: UNK, UNKNOWN
     Route: 065
  12. CYMBALTA [Suspect]
     Active Substance: DULOXETINE HYDROCHLORIDE
     Indication: ULCER
     Dosage: 600 MG, QD
     Route: 048
  13. KALETRA [Suspect]
     Active Substance: LOPINAVIR\RITONAVIR
     Indication: HIV INFECTION
     Dosage: 1 DF, QD
     Route: 048
  14. INTELENCE [Concomitant]
     Active Substance: ETRAVIRINE
     Dosage: UNK, UNKNOWN
     Route: 065
  15. PENTOSAN POLYSULFATE SODIUM [Suspect]
     Active Substance: PENTOSAN POLYSULFATE SODIUM
     Indication: POLLAKIURIA
     Dosage: 200 MG, QD
     Route: 048
  16. RALTEGRAVIR. [Suspect]
     Active Substance: RALTEGRAVIR
     Indication: HIV INFECTION
     Dosage: 2 DF, QD
     Route: 048
  17. FLOXIN                             /00731801/ [Concomitant]
     Dosage: UNK, UNKNOWN
     Route: 065
  18. CYMBALTA [Suspect]
     Active Substance: DULOXETINE HYDROCHLORIDE
     Indication: CYSTITIS ULCERATIVE
  19. LOPINAVIR + RITONAVIR [Suspect]
     Active Substance: LOPINAVIR\RITONAVIR
     Indication: HIV INFECTION
     Dosage: 1 DF, UNKNOWN
     Route: 048
  20. RALTEGRAVIR POTASSIUM [Suspect]
     Active Substance: RALTEGRAVIR POTASSIUM
     Indication: HIV INFECTION
     Dosage: 2 DF, QD
     Route: 048
  21. TOVIAZ [Suspect]
     Active Substance: FESOTERODINE FUMARATE
     Indication: CYSTITIS ULCERATIVE
     Dosage: 8 MG, QD
     Route: 048
  22. ACETAMINOPHEN W/OXYCODONE HYDROCHLORIDE [Concomitant]
     Dosage: UNK, UNKNOWN
     Route: 065
  23. NORFLOXACIN [Concomitant]
     Active Substance: NORFLOXACIN
     Indication: ULCER
     Dosage: UNK, UNKNOWN
     Route: 065
  24. WELLBUTRIN [Concomitant]
     Active Substance: BUPROPION HYDROCHLORIDE
     Dosage: UNK, UNKNOWN
     Route: 065

REACTIONS (3)
  - Overdose [Unknown]
  - Off label use [Unknown]
  - Neutropenia [Not Recovered/Not Resolved]
